FAERS Safety Report 9365384 (Version 4)
Quarter: 2014Q1

REPORT INFORMATION
  Report Type: Spontaneous
  Country: DE (occurrence: DE)
  Receive Date: 20130625
  Receipt Date: 20140108
  Transmission Date: 20141002
  Serious: Yes (Death, Hospitalization)
  Sender: FDA-Public Use
  Company Number: DE-ROCHE-1239491

PATIENT
  Age: 70 Year
  Sex: Female

DRUGS (10)
  1. AVASTIN [Suspect]
     Indication: BREAST CANCER METASTATIC
     Route: 042
     Dates: start: 201209, end: 201304
  2. XELODA [Suspect]
     Indication: BREAST CANCER METASTATIC
     Route: 048
     Dates: start: 201209, end: 201303
  3. XGEVA [Concomitant]
     Indication: METASTASES TO BONE
     Route: 030
     Dates: start: 201111
  4. LEVETIRACETAM [Concomitant]
     Route: 065
  5. PANTOZOL (GERMANY) [Concomitant]
     Route: 065
  6. CANDESARTAN [Concomitant]
     Route: 065
  7. FOLSAURE [Concomitant]
     Route: 065
  8. TRAMADOL [Concomitant]
     Route: 065
  9. TORASEMID [Concomitant]
     Route: 065
  10. EUTHYROX [Concomitant]
     Route: 065

REACTIONS (5)
  - Death [Fatal]
  - Posterior reversible encephalopathy syndrome [Not Recovered/Not Resolved]
  - Restlessness [Unknown]
  - Tremor [Unknown]
  - Epilepsy [Recovered/Resolved]
